FAERS Safety Report 14530105 (Version 1)
Quarter: 2018Q1

REPORT INFORMATION
  Report Type: Other
  Country: FR (occurrence: FR)
  Receive Date: 20180214
  Receipt Date: 20180214
  Transmission Date: 20180509
  Serious: Yes (Hospitalization, Other)
  Sender: FDA-Public Use
  Company Number: FR-GLENMARK PHARMACEUTICALS-2017GMK031858

PATIENT

DRUGS (18)
  1. HYDROCORTISONE BUTYRATE. [Suspect]
     Active Substance: HYDROCORTISONE BUTYRATE
     Indication: PRODUCT USED FOR UNKNOWN INDICATION
     Dosage: 15 MG, QD
     Route: 037
     Dates: start: 20170318, end: 20170318
  2. AUGMENTIN [Concomitant]
     Active Substance: AMOXICILLIN\CLAVULANATE POTASSIUM
     Indication: INFECTION PROPHYLAXIS
     Dosage: UNK
     Route: 065
  3. ATARAX [Concomitant]
     Active Substance: HYDROXYZINE HYDROCHLORIDE
     Indication: ANXIETY
     Dosage: UNK
     Route: 065
  4. INEXIUM                            /01479302/ [Concomitant]
     Active Substance: ESOMEPRAZOLE MAGNESIUM
     Indication: PRODUCT USED FOR UNKNOWN INDICATION
     Dosage: UNK
     Route: 065
  5. VINCRISTINE [Suspect]
     Active Substance: VINCRISTINE
     Indication: ACUTE LYMPHOCYTIC LEUKAEMIA
     Dosage: 1.05 MG, QD
     Route: 042
     Dates: start: 20170406, end: 20170413
  6. PEGASPARGASE [Suspect]
     Active Substance: PEGASPARGASE
     Indication: ACUTE LYMPHOCYTIC LEUKAEMIA
     Dosage: 288 IU, 1X A DAY
     Route: 042
     Dates: start: 20170313, end: 20170313
  7. CYCLOPHOSPHAMIDE. [Suspect]
     Active Substance: CYCLOPHOSPHAMIDE
     Indication: ACUTE LYMPHOCYTIC LEUKAEMIA
     Dosage: 700 MG, 1X A DAY
     Route: 042
     Dates: start: 20170316, end: 20170316
  8. ACLOTINE [Concomitant]
     Active Substance: ANTITHROMBIN III HUMAN
     Indication: ANTITHROMBIN III DEFICIENCY
     Dosage: UNK
     Route: 065
  9. FUNGIZONE [Concomitant]
     Active Substance: AMPHOTERICIN B
     Indication: ANTIFUNGAL PROPHYLAXIS
     Dosage: UNK
     Route: 065
  10. 6-MERCAPTOPURINE MONOHYDRATE [Suspect]
     Active Substance: MERCAPTOPURINE
     Indication: ACUTE LYMPHOCYTIC LEUKAEMIA
     Dosage: 42 MG, QD
     Route: 048
     Dates: start: 20170316, end: 20170405
  11. DEXAMETHASON                       /00016001/ [Suspect]
     Active Substance: DEXAMETHASONE
     Indication: ACUTE LYMPHOCYTIC LEUKAEMIA
     Dosage: 3 MG, UNK
     Route: 048
     Dates: start: 20170306, end: 20170310
  12. CYTARABINE. [Suspect]
     Active Substance: CYTARABINE
     Indication: ACUTE LYMPHOCYTIC LEUKAEMIA
     Dosage: 52.5 MG, QD
     Route: 042
     Dates: start: 20170318, end: 20170321
  13. CYTARABINE. [Suspect]
     Active Substance: CYTARABINE
     Dosage: 30 MG, UNK
     Route: 037
     Dates: start: 20170318, end: 20170318
  14. LAROXYL [Concomitant]
     Active Substance: AMITRIPTYLINE HYDROCHLORIDE
     Indication: NEURALGIA
     Dosage: UNK
     Route: 065
  15. METHOTREXATE. [Suspect]
     Active Substance: METHOTREXATE
     Dosage: 12 MG, 1X A DAY
     Route: 037
     Dates: start: 20170318, end: 20170318
  16. RIVOTRIL [Concomitant]
     Active Substance: CLONAZEPAM
     Indication: NEUROPATHY PERIPHERAL
     Dosage: UNK
     Route: 065
  17. NUBAIN [Concomitant]
     Active Substance: NALBUPHINE HYDROCHLORIDE
     Indication: PROCEDURAL PAIN
     Dosage: UNK
     Route: 065
  18. METHOTREXATE. [Suspect]
     Active Substance: METHOTREXATE
     Indication: ACUTE LYMPHOCYTIC LEUKAEMIA
     Dosage: 15 MG, QD
     Route: 037
     Dates: start: 20170313, end: 20170313

REACTIONS (2)
  - Seizure [Recovered/Resolved]
  - Herpes zoster meningoencephalitis [Recovered/Resolved]

NARRATIVE: CASE EVENT DATE: 20170326
